FAERS Safety Report 10737404 (Version 1)
Quarter: 2015Q1

REPORT INFORMATION
  Report Type: Other
  Country: US (occurrence: US)
  Receive Date: 20150126
  Receipt Date: 20150126
  Transmission Date: 20150721
  Serious: Yes (Death)
  Sender: FDA-Public Use
  Company Number: US-LEHIGH_VALLEY-USA-POI0580201500039

PATIENT
  Age: 62 Year
  Sex: Female

DRUGS (7)
  1. AMITRIPTYLINE [Suspect]
     Active Substance: AMITRIPTYLINE
     Dates: end: 2013
  2. OXCARBAZEPINE. [Suspect]
     Active Substance: OXCARBAZEPINE
     Dates: end: 2013
  3. OXYCODONE HCL CAPSULES [Suspect]
     Active Substance: OXYCODONE HYDROCHLORIDE
     Dates: end: 2013
  4. METOPROLOL [Suspect]
     Active Substance: METOPROLOL
     Dates: end: 2013
  5. MIRTAZAPINE. [Suspect]
     Active Substance: MIRTAZAPINE
     Dates: end: 2013
  6. PAROXETINE [Suspect]
     Active Substance: PAROXETINE\PAROXETINE HYDROCHLORIDE
     Dates: end: 2013
  7. METHADONE [Suspect]
     Active Substance: METHADONE HYDROCHLORIDE
     Dates: end: 2013

REACTIONS (1)
  - Toxicity to various agents [None]

NARRATIVE: CASE EVENT DATE: 2013
